FAERS Safety Report 7075789-6 (Version None)
Quarter: 2010Q4

REPORT INFORMATION
  Report Type: 
  Country: None (occurrence: None)
  Receive Date: 20101101
  Receipt Date: 20101022
  Transmission Date: 20110411
  Serious: Yes (Hospitalization)
  Sender: FDA-Public Use
  Company Number: US-BIOGENIDEC-2010BI036931

PATIENT
  Age: 36 Year
  Sex: Female

DRUGS (1)
  1. AVONEX [Suspect]
     Indication: MULTIPLE SCLEROSIS
     Route: 030
     Dates: start: 20100317

REACTIONS (8)
  - AGGRESSION [None]
  - ALVEOLAR OSTEITIS [None]
  - ANXIETY [None]
  - CHANGE IN SUSTAINED ATTENTION [None]
  - CONTUSION [None]
  - DEPRESSION [None]
  - TOOTH FRACTURE [None]
  - URINARY INCONTINENCE [None]
